FAERS Safety Report 20091515 (Version 4)
Quarter: 2022Q3

REPORT INFORMATION
  Report Type: Report from Study
  Country: US (occurrence: US)
  Receive Date: 20211119
  Receipt Date: 20220729
  Transmission Date: 20221027
  Serious: No
  Sender: FDA-Public Use
  Company Number: US-NOVARTISTESTPH-NVSC2021US265387

PATIENT
  Sex: Female

DRUGS (1)
  1. COSENTYX [Suspect]
     Active Substance: SECUKINUMAB
     Indication: Product used for unknown indication
     Dosage: 300 MG, QMO
     Route: 058
     Dates: start: 20210421, end: 20220727

REACTIONS (7)
  - Illness [Unknown]
  - Pigmentation disorder [Unknown]
  - Pruritus [Unknown]
  - Rash [Unknown]
  - Scratch [Unknown]
  - Device defective [Unknown]
  - Product dose omission issue [Unknown]
